FAERS Safety Report 8812360 (Version 2)
Quarter: 2012Q4

REPORT INFORMATION
  Report Type: 
  Country: US (occurrence: US)
  Receive Date: 20120927
  Receipt Date: 20121214
  Transmission Date: 20130627
  Serious: Yes (Life-Threatening, Hospitalization, Other)
  Sender: FDA-Public Use
  Company Number: US-JNJFOC-20120909357

PATIENT
  Age: 89 Year
  Sex: Male

DRUGS (10)
  1. XARELTO [Suspect]
     Indication: THROMBOSIS PROPHYLAXIS
     Route: 048
     Dates: start: 20120707, end: 20120721
  2. XARELTO [Suspect]
     Indication: KNEE ARTHROPLASTY
     Route: 048
     Dates: start: 20120707, end: 20120721
  3. TYLENOL [Concomitant]
  4. ATENOLOL [Concomitant]
  5. SIMVASTATIN [Concomitant]
  6. CENTRUM SILVER [Concomitant]
  7. NIACIN [Concomitant]
  8. CALCIUM [Concomitant]
  9. ALL OTHER NON-THERAPEUTIC [Concomitant]
  10. ZINC [Concomitant]

REACTIONS (1)
  - Pulmonary embolism [Recovered/Resolved]
